FAERS Safety Report 14368667 (Version 1)
Quarter: 2018Q1

REPORT INFORMATION
  Report Type: Spontaneous
  Country: US (occurrence: US)
  Receive Date: 20180109
  Receipt Date: 20180109
  Transmission Date: 20180509
  Serious: No
  Sender: FDA-Public Use
  Company Number: US-PFIZER INC-2016383175

PATIENT
  Age: 67 Year
  Sex: Female
  Weight: 118 kg

DRUGS (1)
  1. TIKOSYN [Suspect]
     Active Substance: DOFETILIDE
     Dosage: UNK, 3 TIMES A DAY (2 CAPSULES IN A.M. 1 CAPSULES IN THE P.M.)

REACTIONS (4)
  - Weight decreased [Unknown]
  - Anal incontinence [Unknown]
  - Pancreatic enzymes abnormal [Unknown]
  - Diarrhoea [Unknown]

NARRATIVE: CASE EVENT DATE: 2017
